FAERS Safety Report 6910043-1 (Version None)
Quarter: 2010Q3

REPORT INFORMATION
  Report Type: 
  Country: None (occurrence: None)
  Receive Date: 20100806
  Receipt Date: 20100802
  Transmission Date: 20110219
  Serious: Yes (Death, Other)
  Sender: FDA-Public Use
  Company Number: US-CELGENEUS-163-21880-10070407

PATIENT
  Sex: Male

DRUGS (2)
  1. REVLIMID [Suspect]
     Route: 048
     Dates: start: 20071211, end: 20100621
  2. DEXAMETHASONE [Concomitant]
     Route: 065
     Dates: start: 20071116, end: 20100621

REACTIONS (5)
  - DEMENTIA [None]
  - DIABETES MELLITUS [None]
  - MULTIPLE MYELOMA [None]
  - PNEUMONIA [None]
  - RENAL FAILURE [None]
